FAERS Safety Report 25300213 (Version 1)
Quarter: 2025Q2

REPORT INFORMATION
  Report Type: Spontaneous
  Country: US (occurrence: None)
  Receive Date: 20250510
  Receipt Date: 20250510
  Transmission Date: 20250716
  Serious: No
  Sender: FDA-CTU
  Company Number: None

PATIENT
  Age: 55 Year
  Sex: Male

DRUGS (1)
  1. MUCINEX [Suspect]
     Active Substance: GUAIFENESIN

REACTIONS (7)
  - Product design confusion [None]
  - Product colour issue [None]
  - Wrong product administered [None]
  - Somnolence [None]
  - Altered state of consciousness [None]
  - Product packaging issue [None]
  - Product label confusion [None]

NARRATIVE: CASE EVENT DATE: 20250510
